FAERS Safety Report 12666812 (Version 1)
Quarter: 2016Q3

REPORT INFORMATION
  Report Type: Spontaneous
  Country: US (occurrence: US)
  Receive Date: 20160819
  Receipt Date: 20160819
  Transmission Date: 20161109
  Serious: No
  Sender: FDA-Public Use
  Company Number: US-SUN PHARMACEUTICAL INDUSTRIES LTD-2016SUN00007

PATIENT
  Age: 60 Year
  Sex: Female

DRUGS (7)
  1. TECHNETIUM TC-99M PYROPHOSPHATE KIT [Suspect]
     Active Substance: TECHNETIUM TC-99M PYROPHOSPHATE
     Indication: MULTIPLE GATED ACQUISITION SCAN
     Dosage: 3 ML, ENTIRE VIAL
     Route: 042
     Dates: start: 20151215
  2. TECHNETIUM TC99M PERTECHNETATE [Suspect]
     Active Substance: TECHNETIUM TC-99M PERTECHNETATE
     Indication: MULTIPLE GATED ACQUISITION SCAN
     Dosage: 25.1MCI IN 1ML,
     Route: 042
     Dates: start: 20151215
  3. KLONOPIN [Concomitant]
     Active Substance: CLONAZEPAM
     Dosage: ONCE DAILY
  4. ANTIVERT [Concomitant]
     Active Substance: MECLIZINE HYDROCHLORIDE
     Dosage: 3X PER DAY
  5. NORCO [Concomitant]
     Active Substance: ACETAMINOPHEN\HYDROCODONE BITARTRATE
     Dosage: EVERY 6 HOURS AS NEEDED,
  6. DIOVAN [Concomitant]
     Active Substance: VALSARTAN
     Dosage: ONCE DAILY
  7. LOVENOX [Concomitant]
     Active Substance: ENOXAPARIN SODIUM
     Dosage: UNK, BID

REACTIONS (1)
  - Radioisotope scan abnormal [Recovered/Resolved]

NARRATIVE: CASE EVENT DATE: 20151215
